FAERS Safety Report 5839124-0 (Version None)
Quarter: 2008Q3

REPORT INFORMATION
  Report Type: 
  Country: None (occurrence: None)
  Receive Date: 20080808
  Receipt Date: 20080730
  Transmission Date: 20090109
  Serious: Yes (Other)
  Sender: FDA-Public Use
  Company Number: JP-PFIZER INC-2008043857

PATIENT
  Age: 40 Year
  Sex: Female

DRUGS (16)
  1. PROVERA [Suspect]
     Indication: AMENORRHOEA
     Route: 048
  2. PREMARIN [Concomitant]
     Route: 048
  3. NORVASC [Concomitant]
     Route: 048
  4. OLMESARTAN MEDOXOMIL [Concomitant]
     Route: 048
  5. TENORMIN [Concomitant]
     Route: 048
  6. OMEPRAZOLE [Concomitant]
  7. HERBAL PREPARATION [Concomitant]
     Route: 048
  8. CYANOCOBALAMIN [Concomitant]
  9. OPALMON [Concomitant]
     Route: 048
  10. GABAPENTIN [Concomitant]
     Route: 048
  11. BACLOFEN [Concomitant]
     Route: 048
  12. ACONITE [Concomitant]
     Route: 048
  13. VANCOMIN [Concomitant]
  14. POLARAMINE [Concomitant]
  15. ALLELOCK [Concomitant]
     Route: 048
  16. ANTIBIOTICS [Concomitant]

REACTIONS (1)
  - BLOOD CHOLESTEROL INCREASED [None]
